FAERS Safety Report 7358599-1 (Version None)
Quarter: 2011Q1

REPORT INFORMATION
  Report Type: 
  Country: None (occurrence: None)
  Receive Date: 20110317
  Receipt Date: 20101229
  Transmission Date: 20110831
  Serious: Yes (Other)
  Sender: FDA-Public Use
  Company Number: PHHY2010GB90662

PATIENT
  Age: 20 Year
  Sex: Female

DRUGS (3)
  1. MAGNESIUM SULFATE [Concomitant]
     Dosage: 4 G, UNK
     Route: 042
  2. LABETALOL HCL [Suspect]
  3. HYDRALAZINE HCL [Suspect]
     Route: 042

REACTIONS (3)
  - HEADACHE [None]
  - PREMATURE LABOUR [None]
  - DRUG EXPOSURE DURING PREGNANCY [None]
